FAERS Safety Report 16568110 (Version 1)
Quarter: 2019Q3

REPORT INFORMATION
  Report Type: Spontaneous
  Country: US (occurrence: US)
  Receive Date: 20190712
  Receipt Date: 20190712
  Transmission Date: 20191004
  Serious: Yes (Other)
  Sender: FDA-Public Use
  Company Number: US-ELI_LILLY_AND_COMPANY-US201907002084

PATIENT
  Age: 73 Year
  Sex: Male

DRUGS (3)
  1. LANTUS [Suspect]
     Active Substance: INSULIN GLARGINE
     Indication: TYPE 2 DIABETES MELLITUS
     Dosage: 100 U, PRN(70-100)
     Route: 058
     Dates: start: 2004
  2. MULTAQ [Suspect]
     Active Substance: DRONEDARONE
     Indication: HEART RATE
     Dosage: 400 MG, BID
     Route: 065
  3. HUMALOG [Suspect]
     Active Substance: INSULIN LISPRO
     Indication: PRODUCT USED FOR UNKNOWN INDICATION
     Dosage: UNK UNK, PRN(3 TIMES A DAY ON SLIDING SCALE)
     Route: 065

REACTIONS (4)
  - Tremor [Unknown]
  - Gait disturbance [Unknown]
  - Cough [Unknown]
  - Speech disorder [Unknown]
